FAERS Safety Report 8565093-9 (Version None)
Quarter: 2012Q3

REPORT INFORMATION
  Report Type: 
  Country: None (occurrence: None)
  Receive Date: 20120803
  Receipt Date: 20120726
  Transmission Date: 20120928
  Serious: Yes (Hospitalization)
  Sender: FDA-Public Use
  Company Number: IT-ROCHE-1093061

PATIENT
  Sex: Male

DRUGS (3)
  1. XELODA [Concomitant]
     Route: 048
     Dates: start: 20120720, end: 20120723
  2. AVASTIN [Suspect]
     Route: 041
     Dates: start: 20120720, end: 20120720
  3. AVASTIN [Suspect]
     Indication: COLON CANCER
     Route: 041
     Dates: start: 20120720, end: 20120720

REACTIONS (3)
  - CHEST PAIN [None]
  - MYOPERICARDITIS [None]
  - RETCHING [None]
